FAERS Safety Report 13020389 (Version 4)
Quarter: 2017Q1

REPORT INFORMATION
  Report Type: Spontaneous
  Country: CN (occurrence: CN)
  Receive Date: 20161212
  Receipt Date: 20170315
  Transmission Date: 20170428
  Serious: Yes (Hospitalization, Other)
  Sender: FDA-Public Use
  Company Number: CN-SA-2016SA221699

PATIENT
  Age: 66 Year
  Sex: Male

DRUGS (8)
  1. METOPROLOL. [Concomitant]
     Active Substance: METOPROLOL
  2. CALCITRIOL. [Concomitant]
     Active Substance: CALCITRIOL
  3. METFORMIN [Suspect]
     Active Substance: METFORMIN HYDROCHLORIDE
     Indication: TYPE 2 DIABETES MELLITUS
     Route: 065
  4. ASPIRIN. [Suspect]
     Active Substance: ASPIRIN
     Route: 065
  5. ATORVASTATIN [Concomitant]
     Active Substance: ATORVASTATIN
  6. ISOSORBIDE MONONITRATE. [Concomitant]
     Active Substance: ISOSORBIDE MONONITRATE
  7. ERYTHROPOIETIN [Concomitant]
     Active Substance: ERYTHROPOIETIN
  8. PLAVIX [Suspect]
     Active Substance: CLOPIDOGREL BISULFATE
     Route: 065

REACTIONS (12)
  - Lactic acidosis [Recovered/Resolved]
  - Blood lactic acid increased [Recovered/Resolved]
  - Vomiting [Recovered/Resolved]
  - Intentional product misuse [Unknown]
  - Upper gastrointestinal haemorrhage [Unknown]
  - PO2 decreased [Recovered/Resolved]
  - PCO2 increased [Recovered/Resolved]
  - Nausea [Recovered/Resolved]
  - Anion gap increased [Recovered/Resolved]
  - Blood pH decreased [Recovered/Resolved]
  - Blood bicarbonate decreased [Recovered/Resolved]
  - Base excess negative [Recovered/Resolved]
